FAERS Safety Report 21925628 (Version 1)
Quarter: 2023Q1

REPORT INFORMATION
  Report Type: Spontaneous
  Country: US (occurrence: None)
  Receive Date: 20230127
  Receipt Date: 20230127
  Transmission Date: 20230418
  Serious: No
  Sender: FDA-Public Use
  Company Number: None

PATIENT
  Age: 44 Year
  Sex: Female
  Weight: 68.99 kg

DRUGS (10)
  1. CAPECITABINE [Suspect]
     Active Substance: CAPECITABINE
     Indication: Breast cancer female
     Dosage: 1500MG TWICE A DAY ORAL
     Route: 048
  2. ATIVAN [Concomitant]
     Active Substance: LORAZEPAM
  3. CANNABIDIOL [Concomitant]
     Active Substance: CANNABIDIOL
  4. CYCLOBENZAPRINE [Concomitant]
     Active Substance: CYCLOBENZAPRINE
  5. EFFEXOR XR [Concomitant]
     Active Substance: VENLAFAXINE HYDROCHLORIDE
  6. FULVESTRANT INTRAMUSCULAR SOLUTION [Concomitant]
  7. LUPRON DEPOT (1-MONTH) [Concomitant]
  8. MAGNESIUM [Concomitant]
     Active Substance: MAGNESIUM
  9. ULTRAM [Concomitant]
     Active Substance: TRAMADOL HYDROCHLORIDE
  10. XGEVA [Concomitant]
     Active Substance: DENOSUMAB

REACTIONS (1)
  - Neutropenia [None]
